FAERS Safety Report 23869003 (Version 1)
Quarter: 2024Q2

REPORT INFORMATION
  Report Type: Spontaneous
  Country: PL (occurrence: PL)
  Receive Date: 20240517
  Receipt Date: 20240517
  Transmission Date: 20240716
  Serious: Yes (Hospitalization, Other)
  Sender: FDA-Public Use
  Company Number: PL-GILEAD-2024-0673111

PATIENT
  Age: 41 Year
  Sex: Male

DRUGS (12)
  1. YESCARTA [Suspect]
     Active Substance: AXICABTAGENE CILOLEUCEL
     Indication: Primary mediastinal large B-cell lymphoma
     Dosage: UNK
     Route: 042
     Dates: start: 20200302, end: 20200302
  2. FLUDARABINE [Concomitant]
     Active Substance: FLUDARABINE PHOSPHATE
     Dosage: UNK
     Dates: start: 20200226, end: 20200228
  3. FLUDARABINE [Concomitant]
     Active Substance: FLUDARABINE PHOSPHATE
     Dosage: UNK
     Dates: start: 202012, end: 202012
  4. CYCLOPHOSPHAMIDE [Concomitant]
     Active Substance: CYCLOPHOSPHAMIDE
     Dosage: UNK
     Dates: start: 20200226, end: 20200228
  5. LEVETIRACETAM [Concomitant]
     Active Substance: LEVETIRACETAM
  6. BENDAMUSTINE [Concomitant]
     Active Substance: BENDAMUSTINE
     Dosage: UNK
     Dates: start: 202012, end: 202012
  7. HEMATOPOIETIC PERIPHERAL BLOOD STEM CELLS [Concomitant]
     Dosage: UNK
     Dates: start: 202012, end: 202012
  8. CYCLOSPORINE [Concomitant]
     Active Substance: CYCLOSPORINE
  9. HERBALS [Concomitant]
     Active Substance: HERBALS
  10. VEKLURY [Concomitant]
     Active Substance: REMDESIVIR
     Dosage: UNK
     Dates: start: 202012
  11. COVID-19 CONVALESCENT PLASMA [Concomitant]
     Active Substance: COVID-19 CONVALESCENT PLASMA
     Dosage: UNK
     Dates: start: 202012
  12. METHOTREXATE SODIUM [Concomitant]
     Active Substance: METHOTREXATE SODIUM
     Dosage: UNK
     Dates: start: 202012

REACTIONS (5)
  - COVID-19 [Recovered/Resolved]
  - Pulmonary necrosis [Unknown]
  - Graft versus host disease in skin [Unknown]
  - Immune effector cell-associated neurotoxicity syndrome [Recovered/Resolved]
  - Cytokine release syndrome [Recovered/Resolved]

NARRATIVE: CASE EVENT DATE: 20200307
